FAERS Safety Report 11750497 (Version 1)
Quarter: 2015Q4

REPORT INFORMATION
  Report Type: Spontaneous
  Country: JP (occurrence: JP)
  Receive Date: 20151118
  Receipt Date: 20151118
  Transmission Date: 20160304
  Serious: Yes (Hospitalization, Other)
  Sender: FDA-Public Use
  Company Number: JP-JNJFOC-20151115079

PATIENT
  Sex: Female

DRUGS (1)
  1. RISPERDAL [Suspect]
     Active Substance: RISPERIDONE
     Indication: PRODUCT USED FOR UNKNOWN INDICATION
     Route: 048
     Dates: start: 201411

REACTIONS (9)
  - Somnolence [Unknown]
  - Decubitus ulcer [Unknown]
  - Dysphagia [Unknown]
  - Hallucination [Unknown]
  - Product use issue [Unknown]
  - Dementia [Unknown]
  - Feeling abnormal [Unknown]
  - Altered state of consciousness [Unknown]
  - Off label use [Unknown]

NARRATIVE: CASE EVENT DATE: 201509
